FAERS Safety Report 14539295 (Version 1)
Quarter: 2018Q1

REPORT INFORMATION
  Report Type: Spontaneous
  Country: US (occurrence: US)
  Receive Date: 20180215
  Receipt Date: 20180215
  Transmission Date: 20180509
  Serious: Yes (Other)
  Sender: FDA-Public Use
  Company Number: None

PATIENT
  Age: 29 Year
  Sex: Female
  Weight: 63 kg

DRUGS (1)
  1. MULTIHANCE [Suspect]
     Active Substance: GADOBENATE DIMEGLUMINE
     Indication: BLINDNESS TRANSIENT
     Dosage: ?          OTHER FREQUENCY:1 TIME USE;?
     Route: 040
     Dates: start: 20180215, end: 20180215

REACTIONS (4)
  - Rash erythematous [None]
  - Flushing [None]
  - Contrast media reaction [None]
  - Dry mouth [None]

NARRATIVE: CASE EVENT DATE: 20180215
